FAERS Safety Report 11732724 (Version 1)
Quarter: 2015Q4

REPORT INFORMATION
  Report Type: Spontaneous
  Country: US (occurrence: US)
  Receive Date: 20151110
  Receipt Date: 20151110
  Transmission Date: 20160304
  Serious: No
  Sender: FDA-Public Use
  Company Number: US-ELI_LILLY_AND_COMPANY-US201201005257

PATIENT
  Sex: Female

DRUGS (4)
  1. FORTEO [Suspect]
     Active Substance: TERIPARATIDE
     Dosage: 20 UG, QD
     Dates: end: 201202
  2. TYLENOL [Concomitant]
     Active Substance: ACETAMINOPHEN
  3. FORTEO [Suspect]
     Active Substance: TERIPARATIDE
     Indication: OSTEOPOROSIS
     Dosage: 20 UG, QD
     Dates: start: 20110922
  4. MOTRIN [Concomitant]
     Active Substance: IBUPROFEN

REACTIONS (14)
  - Muscular weakness [Not Recovered/Not Resolved]
  - Pain [Not Recovered/Not Resolved]
  - Musculoskeletal stiffness [Unknown]
  - Arthralgia [Unknown]
  - Localised oedema [Not Recovered/Not Resolved]
  - Injection site bruising [Unknown]
  - Peripheral swelling [Not Recovered/Not Resolved]
  - Injection site mass [Unknown]
  - Injection site swelling [Unknown]
  - Pain in extremity [Unknown]
  - Joint swelling [Not Recovered/Not Resolved]
  - Feeling abnormal [Unknown]
  - Activities of daily living impaired [Unknown]
  - Pain [Unknown]
